FAERS Safety Report 16863617 (Version 1)
Quarter: 2019Q3

REPORT INFORMATION
  Report Type: Report from Study
  Country: IN (occurrence: IN)
  Receive Date: 20190927
  Receipt Date: 20190927
  Transmission Date: 20191005
  Serious: Yes (Death, Hospitalization, Other)
  Sender: FDA-Public Use
  Company Number: IN-BAYER-2019-170033

PATIENT
  Age: 53 Year
  Sex: Male

DRUGS (1)
  1. NEXAVAR [Suspect]
     Active Substance: SORAFENIB
     Indication: HEPATOCELLULAR CARCINOMA
     Dosage: 400 MG, UNK
     Route: 048
     Dates: start: 20190414

REACTIONS (6)
  - Diabetes mellitus [None]
  - Systemic viral infection [None]
  - Hospitalisation [None]
  - Neoplasm malignant [None]
  - Blood pressure increased [None]
  - Myocardial infarction [Fatal]

NARRATIVE: CASE EVENT DATE: 20190719
